FAERS Safety Report 25836882 (Version 1)
Quarter: 2025Q3

REPORT INFORMATION
  Report Type: Spontaneous
  Country: US (occurrence: None)
  Receive Date: 20250915
  Receipt Date: 20250915
  Transmission Date: 20251020
  Serious: No
  Sender: FDA-CTU
  Company Number: None

PATIENT
  Age: 22 Year
  Sex: Female
  Weight: 135 kg

DRUGS (3)
  1. COSMETICS [Suspect]
     Active Substance: COSMETICS
     Indication: Acne
     Dates: start: 20250616, end: 20250831
  2. COSMETICS [Suspect]
     Active Substance: COSMETICS
  3. COSMETICS [Suspect]
     Active Substance: COSMETICS

REACTIONS (4)
  - Liquid product physical issue [None]
  - Blood viscosity increased [None]
  - Product colour issue [None]
  - Acne [None]

NARRATIVE: CASE EVENT DATE: 20250829
